FAERS Safety Report 9014679 (Version 2)
Quarter: 2013Q1

REPORT INFORMATION
  Report Type: Report from Study
  Country: GB (occurrence: GB)
  Receive Date: 20130115
  Receipt Date: 20130222
  Transmission Date: 20140127
  Serious: Yes (Hospitalization, Other)
  Sender: FDA-Public Use
  Company Number: GB-PFIZER INC-2013011080

PATIENT
  Age: 58 Year
  Sex: Female
  Weight: 94.9 kg

DRUGS (11)
  1. EPIRUBICIN HCL [Suspect]
     Indication: BREAST CANCER
     Dosage: 150 MG, CYCLIC
     Route: 042
     Dates: start: 20091009
  2. CYCLOPHOSPHAMIDE [Suspect]
     Indication: BREAST CANCER
     Dosage: 1000 MG, EVERY 3 WEEKS
     Route: 042
     Dates: start: 20091009, end: 20091214
  3. CYCLOPHOSPHAMIDE [Suspect]
     Dosage: UNK
     Route: 042
     Dates: start: 20100115
  4. FLUOROURACIL [Suspect]
     Indication: BREAST CANCER
     Dosage: 1000 MG, EVERY 3 WEEKS
     Route: 042
     Dates: start: 20091009, end: 20091214
  5. FLUOROURACIL [Suspect]
     Dosage: UNK
     Route: 042
     Dates: start: 20100115
  6. BEVACIZUMAB [Suspect]
     Indication: BREAST CANCER
     Dosage: 1425 MG, EVERY 3 WEEKS
     Route: 042
     Dates: start: 20091009, end: 20091214
  7. THYROXINE [Concomitant]
     Dosage: UNK
     Dates: start: 20010601
  8. GCSF [Concomitant]
     Dosage: 0.5 ML, 1 IN 1 AS REQUIRED (300UG)
     Dates: start: 20100114, end: 20100124
  9. METOCLOPRAMIDE [Concomitant]
     Dosage: 30 MG, UNK
     Dates: start: 20091009
  10. CHLORPHENAMINE [Concomitant]
     Dosage: 12 MG, UNK
     Dates: start: 20091030, end: 20100212
  11. CLEXANE [Concomitant]
     Dosage: 120 UG, UNK
     Dates: start: 20100107

REACTIONS (4)
  - Extravasation [Recovered/Resolved with Sequelae]
  - Deep vein thrombosis [Recovered/Resolved]
  - Circulatory collapse [Recovered/Resolved]
  - Dehydration [Recovered/Resolved]
